FAERS Safety Report 7352677-9 (Version None)
Quarter: 2011Q1

REPORT INFORMATION
  Report Type: 
  Country: None (occurrence: None)
  Receive Date: 20110315
  Receipt Date: 20110314
  Transmission Date: 20110831
  Serious: Yes (Hospitalization)
  Sender: FDA-Public Use
  Company Number: ES-PFIZER INC-2011055136

PATIENT
  Age: 78 Year
  Sex: Female

DRUGS (6)
  1. LEVOTHROID [Concomitant]
     Indication: HYPOTHYROIDISM
     Dosage: 25 UG, 1X/DAY
     Route: 048
  2. AMLODIPINE BESYLATE AND VALSARTAN [Interacting]
     Indication: HYPERTENSION
     Dosage: 160 MG, 1X/DAY
     Route: 048
     Dates: start: 20050101, end: 20110101
  3. PRANDIN [Concomitant]
     Indication: DIABETES MELLITUS
     Dosage: 1 MG, 1X/DAY
     Route: 048
  4. ALDACTONE [Suspect]
     Indication: HYPERTENSION
     Dosage: 100 MG, 1X/DAY
     Route: 048
     Dates: start: 20100101, end: 20110101
  5. METFORMIN [Concomitant]
     Indication: DIABETES MELLITUS
     Dosage: 425 MG, 1X/DAY
     Route: 048
  6. CARDURA [Concomitant]
     Indication: HYPERTENSION
     Dosage: 8 MG, 1X/DAY
     Route: 048

REACTIONS (4)
  - DRUG INTERACTION [None]
  - ELECTROCARDIOGRAM QRS COMPLEX PROLONGED [None]
  - SINOATRIAL BLOCK [None]
  - HYPERKALAEMIA [None]
